FAERS Safety Report 4988110-1 (Version None)
Quarter: 2006Q2

REPORT INFORMATION
  Report Type: 
  Country: None (occurrence: None)
  Receive Date: 20060501
  Receipt Date: 20060421
  Transmission Date: 20061013
  Serious: Yes (Hospitalization)
  Sender: FDA-Public Use
  Company Number: US-MERCK-0604USA03650

PATIENT
  Age: 60 Year
  Sex: Male
  Weight: 84 kg

DRUGS (11)
  1. VIOXX [Suspect]
     Indication: ARTHRITIS
     Route: 048
     Dates: start: 20000401, end: 20001101
  2. ALLEGRA [Concomitant]
     Route: 065
  3. DIAZEPAM [Concomitant]
     Route: 065
  4. FLONASE [Concomitant]
     Route: 065
  5. CATAPRES [Concomitant]
     Route: 065
  6. LESCOL [Concomitant]
     Route: 065
  7. TRAZODONE HYDROCHLORIDE [Concomitant]
     Route: 065
  8. HYDROCHLOROTHIAZIDE [Concomitant]
     Route: 065
  9. LORAZEPAM [Concomitant]
     Route: 065
  10. PROMETHAZINE [Concomitant]
     Route: 065
  11. ULTRAM [Concomitant]
     Route: 065

REACTIONS (4)
  - CARDIAC DISORDER [None]
  - CARDIAC PACEMAKER INSERTION [None]
  - DEPRESSION [None]
  - MYOCARDIAL INFARCTION [None]
